FAERS Safety Report 4901697-X (Version None)
Quarter: 2006Q1

REPORT INFORMATION
  Report Type: 
  Country: None (occurrence: None)
  Receive Date: 20060206
  Receipt Date: 20051116
  Transmission Date: 20060701
  Serious: Yes (Other)
  Sender: FDA-Public Use
  Company Number: US-BRISTOL-MYERS SQUIBB COMPANY-13182985

PATIENT

DRUGS (1)
  1. TAXOL [Suspect]

REACTIONS (2)
  - LUNG INFILTRATION [None]
  - PULMONARY TOXICITY [None]
